FAERS Safety Report 9387433 (Version 2)
Quarter: 2013Q4

REPORT INFORMATION
  Report Type: Spontaneous
  Country: US (occurrence: US)
  Receive Date: 20130708
  Receipt Date: 20131126
  Transmission Date: 20140711
  Serious: No
  Sender: FDA-Public Use
  Company Number: US-B.I. PHARMACEUTICALS,INC./RIDGEFIELD-2013-BI-19635BP

PATIENT
  Age: 56 Year
  Sex: Male
  Weight: 131.09 kg

DRUGS (7)
  1. PRADAXA [Suspect]
     Indication: ATRIAL FIBRILLATION
     Dosage: 300 MG
     Route: 048
     Dates: start: 20110624, end: 20110719
  2. MULTAQ [Concomitant]
     Dosage: 800 MG
     Route: 048
  3. LISINOPRIL [Concomitant]
     Dosage: 20 MG
     Route: 048
  4. LASIX [Concomitant]
     Dosage: 20 MG
     Route: 048
  5. HYTRIN [Concomitant]
     Route: 048
  6. CARVEDILOL [Concomitant]
     Dosage: 25 MG
     Route: 048
  7. LANSOPRAZOLE [Concomitant]
     Dosage: 30 MG
     Route: 048

REACTIONS (6)
  - Melaena [Unknown]
  - Asthenia [Unknown]
  - Coagulopathy [Unknown]
  - Gastric ulcer [Unknown]
  - Gastrointestinal haemorrhage [Unknown]
  - Rectal haemorrhage [Unknown]
